FAERS Safety Report 9466349 (Version 1)
Quarter: 2013Q3

REPORT INFORMATION
  Report Type: Spontaneous
  Country: US (occurrence: US)
  Receive Date: 20130820
  Receipt Date: 20130820
  Transmission Date: 20140515
  Serious: Yes (Hospitalization)
  Sender: FDA-Public Use
  Company Number: US-PFIZER INC-2013235759

PATIENT
  Age: 76 Year
  Sex: Female
  Weight: 68.48 kg

DRUGS (4)
  1. VFEND [Suspect]
     Indication: PNEUMONIA FUNGAL
     Dosage: 200 MG, 2X/DAY
     Dates: start: 201109
  2. VFEND [Suspect]
     Dosage: 200 MG, 2X/DAY
     Dates: start: 201305
  3. ONGLYZA [Concomitant]
     Indication: DIABETES MELLITUS
     Dosage: 5 MG, DAILY
  4. METOPROLOL [Concomitant]
     Indication: HYPERTENSION
     Dosage: 12.5 MG, 2X/DAY

REACTIONS (3)
  - Pneumonia fungal [Unknown]
  - Vision blurred [Unknown]
  - Gastrooesophageal reflux disease [Unknown]
